FAERS Safety Report 24340810 (Version 1)
Quarter: 2024Q3

REPORT INFORMATION
  Report Type: Spontaneous
  Country: DE (occurrence: DE)
  Receive Date: 20240919
  Receipt Date: 20240919
  Transmission Date: 20241016
  Serious: Yes (Hospitalization, Other)
  Sender: BRISTOL MYERS SQUIBB
  Company Number: DE-BRISTOL-MYERS SQUIBB COMPANY-2024-145929

PATIENT
  Age: 71 Year

DRUGS (2)
  1. NIVOLUMAB [Suspect]
     Active Substance: NIVOLUMAB
     Indication: Clear cell renal cell carcinoma
  2. IPILIMUMAB [Suspect]
     Active Substance: IPILIMUMAB
     Indication: Clear cell renal cell carcinoma

REACTIONS (7)
  - Hypophysitis [Unknown]
  - Pneumonitis [Unknown]
  - Rash pruritic [Unknown]
  - Pyrexia [Unknown]
  - Blood creatinine increased [Unknown]
  - Dyspnoea [Unknown]
  - Tachycardia [Unknown]
